FAERS Safety Report 4673887-5 (Version None)
Quarter: 2005Q2

REPORT INFORMATION
  Report Type: 
  Country: None (occurrence: None)
  Receive Date: 20050524
  Receipt Date: 20050505
  Transmission Date: 20051028
  Serious: Yes (Death, Hospitalization)
  Sender: FDA-Public Use
  Company Number: EWC050343120

PATIENT
  Age: 47 Year
  Sex: Male
  Weight: 41 kg

DRUGS (5)
  1. ALIMTA [Suspect]
     Indication: GASTRIC CANCER
     Dosage: 1184 MG/M2/1 OTHER
     Route: 050
     Dates: start: 20050127, end: 20050219
  2. CISPLATIN [Suspect]
     Indication: GASTRIC CANCER
     Dosage: 110 MG/M2/1 OTHER
     Route: 050
     Dates: start: 20050127, end: 20050219
  3. VITAMIN B-12 [Concomitant]
  4. STRESSTABS [Concomitant]
  5. MEDROXYPROGESTERONE [Concomitant]

REACTIONS (26)
  - ABNORMAL BEHAVIOUR [None]
  - ACTIVATED PARTIAL THROMBOPLASTIN TIME PROLONGED [None]
  - BLOOD ALBUMIN DECREASED [None]
  - BLOOD UREA INCREASED [None]
  - DELIRIUM [None]
  - DEPRESSION [None]
  - HAEMATOCRIT DECREASED [None]
  - HAEMOGLOBIN DECREASED [None]
  - HEPATIC ENCEPHALOPATHY [None]
  - HEPATIC FAILURE [None]
  - HEPATITIS B [None]
  - HEPATITIS C [None]
  - INSOMNIA [None]
  - INTENTIONAL SELF-INJURY [None]
  - INTERNATIONAL NORMALISED RATIO FLUCTUATION [None]
  - LYMPHOCYTE PERCENTAGE DECREASED [None]
  - NEUTROPHIL COUNT DECREASED [None]
  - PERSECUTORY DELUSION [None]
  - PERSONALITY CHANGE [None]
  - PLATELET COUNT DECREASED [None]
  - PROTHROMBIN TIME PROLONGED [None]
  - RED BLOOD CELL COUNT DECREASED [None]
  - RED BLOOD CELLS CSF POSITIVE [None]
  - TREATMENT NONCOMPLIANCE [None]
  - WEIGHT INCREASED [None]
  - WHITE BLOOD CELL COUNT DECREASED [None]
